FAERS Safety Report 8006430-3 (Version None)
Quarter: 2011Q4

REPORT INFORMATION
  Report Type: 
  Country: None (occurrence: None)
  Receive Date: 20111226
  Receipt Date: 20111219
  Transmission Date: 20120403
  Serious: Yes (Death, Hospitalization)
  Sender: FDA-Public Use
  Company Number: US-ACTELION-A-NJ2011-54409

PATIENT

DRUGS (5)
  1. COUMADIN [Concomitant]
  2. VENTAVIS [Suspect]
     Indication: PULMONARY ARTERIAL HYPERTENSION
     Dosage: UNK
     Route: 055
     Dates: start: 20090922
  3. TRACLEER [Suspect]
     Indication: PULMONARY ARTERIAL HYPERTENSION
     Dosage: UNK
     Route: 048
     Dates: start: 20040603
  4. CALCIUM CHANNEL BLOCKERS [Concomitant]
  5. OXYGEN [Concomitant]

REACTIONS (6)
  - DISEASE COMPLICATION [None]
  - SARCOIDOSIS [None]
  - PULMONARY ARTERIAL HYPERTENSION [None]
  - PNEUMONIA [None]
  - MALAISE [None]
  - DYSPNOEA [None]
